FAERS Safety Report 20749903 (Version 21)
Quarter: 2025Q2

REPORT INFORMATION
  Report Type: Report from Study
  Country: CN (occurrence: CN)
  Receive Date: 20220426
  Receipt Date: 20250430
  Transmission Date: 20250716
  Serious: Yes (Death, Hospitalization)
  Sender: DAIICHI
  Company Number: CN-DSJP-DSE-2021-135296

PATIENT
  Age: 71 Year
  Sex: Male
  Weight: 60 kg

DRUGS (13)
  1. EDOXABAN [Suspect]
     Active Substance: EDOXABAN
     Indication: Atrial fibrillation
     Dosage: 60 MG, QD
     Route: 048
     Dates: start: 20210719, end: 20211020
  2. EDOXABAN [Suspect]
     Active Substance: EDOXABAN
     Dosage: 30 MG, QD
     Route: 048
     Dates: start: 20211129, end: 20220207
  3. MELOTOL [Concomitant]
     Indication: Ventricular dysfunction
     Dosage: 47.5 MG, QD
     Route: 048
     Dates: start: 20210719
  4. MELOTOL [Concomitant]
     Indication: Atrial fibrillation
  5. FLUNARIZINE [Concomitant]
     Active Substance: FLUNARIZINE
     Indication: Vasospasm
     Dosage: 10 MG, QD
     Route: 048
     Dates: start: 20210719, end: 20220120
  6. MACARONI [Concomitant]
     Indication: Cardiomyopathy
     Dosage: 10 UL, TID
     Route: 048
     Dates: start: 20210719, end: 20220120
  7. MUSK [Concomitant]
     Indication: Cardiac disorder
     Dosage: 22.5 MG, TID
     Route: 048
     Dates: start: 20210719, end: 20220120
  8. ATORVASTATIN CALCIUM [Concomitant]
     Active Substance: ATORVASTATIN CALCIUM
     Indication: Arteriosclerosis
     Dosage: 20 MG, SINGLE
     Route: 048
     Dates: start: 20210719
  9. XIN NAO NING [Concomitant]
     Indication: Cardiomyopathy
     Dosage: 0.9 G, TID
     Route: 048
     Dates: start: 20210120
  10. LACTULOSE [Concomitant]
     Active Substance: LACTULOSE
     Indication: Gastrointestinal disorder prophylaxis
     Dosage: 10 MILLILITER/CUBIC CENTIMETER, TID
     Route: 048
     Dates: start: 20220120
  11. SUCRALFATE [Concomitant]
     Active Substance: SUCRALFATE
     Indication: Gastrointestinal disorder prophylaxis
     Dosage: 10 MILLILITER/CUBIC CENTIMETER, BID
     Route: 048
     Dates: start: 20220120
  12. RABEPRAZOLE [Concomitant]
     Active Substance: RABEPRAZOLE
     Indication: Gastrointestinal disorder prophylaxis
     Dosage: 20 MILLILITER/CUBIC CENTIMETER, QD
     Route: 048
     Dates: start: 20220120
  13. LEVOFLOXACIN [Concomitant]
     Active Substance: LEVOFLOXACIN
     Indication: Anti-infective therapy
     Dosage: 1 DOSAGE FORM, QD
     Route: 048
     Dates: start: 20220120

REACTIONS (3)
  - Death [Fatal]
  - Cardiac failure [Recovered/Resolved]
  - Faeces discoloured [Unknown]

NARRATIVE: CASE EVENT DATE: 20210906
